FAERS Safety Report 6692725-2 (Version None)
Quarter: 2010Q2

REPORT INFORMATION
  Report Type: 
  Country: None (occurrence: None)
  Receive Date: 20100419
  Receipt Date: 20100405
  Transmission Date: 20101027
  Serious: Yes (Other)
  Sender: FDA-Public Use
  Company Number: DSU-2010-01460

PATIENT
  Sex: Female
  Weight: 79.3795 kg

DRUGS (10)
  1. AZOR [Suspect]
     Indication: HYPERTENSION
     Dosage: 10/40 MG (QD), PER ORAL
     Route: 048
     Dates: start: 20080717, end: 20091124
  2. TRILIPIX [Suspect]
     Indication: HYPERLIPIDAEMIA
     Dosage: 45 MG (45 MG, QD), PER ORAL
     Route: 048
     Dates: start: 20090207, end: 20091124
  3. VITAMIN D [Concomitant]
  4. LOVAZA [Suspect]
  5. ZETIA [Concomitant]
  6. TRIAMTERENE [Concomitant]
  7. VITAMIN B12 [Concomitant]
  8. CALCIUM CARBONATE [Concomitant]
  9. IRON [Concomitant]
  10. CRESTOR [Concomitant]

REACTIONS (5)
  - ANAEMIA [None]
  - BLOOD CREATININE INCREASED [None]
  - GLOMERULAR FILTRATION RATE ABNORMAL [None]
  - HYPERLIPIDAEMIA [None]
  - RENAL IMPAIRMENT [None]
